FAERS Safety Report 7979986-4 (Version None)
Quarter: 2011Q4

REPORT INFORMATION
  Report Type: 
  Country: None (occurrence: None)
  Receive Date: 20111214
  Receipt Date: 20111204
  Transmission Date: 20120403
  Serious: Yes (Other)
  Sender: FDA-Public Use
  Company Number: PHHY2011CA105660

PATIENT

DRUGS (8)
  1. METFORMIN HCL [Concomitant]
     Dosage: 250 MG, TID
  2. ALISKIREN [Suspect]
     Indication: PROTEINURIA
     Dosage: 150 MG
     Route: 048
     Dates: start: 20100723
  3. PLAVIX [Concomitant]
  4. NOVOLOG MIX 70/30 [Concomitant]
  5. CALCIUM CHANNEL BLOCKERS [Concomitant]
  6. ACE INHIBITOR [Concomitant]
  7. DIURETICS [Concomitant]
  8. EZETIMIBE [Concomitant]
     Dosage: 10 MG

REACTIONS (4)
  - GLYCOSYLATED HAEMOGLOBIN INCREASED [None]
  - BLOOD PRESSURE DIASTOLIC DECREASED [None]
  - URINE ALBUMIN/CREATININE RATIO INCREASED [None]
  - BLOOD PRESSURE SYSTOLIC INCREASED [None]
